FAERS Safety Report 8535237-3 (Version None)
Quarter: 2012Q3

REPORT INFORMATION
  Report Type: 
  Country: None (occurrence: None)
  Receive Date: 20120725
  Receipt Date: 20120712
  Transmission Date: 20120928
  Serious: Yes (Hospitalization)
  Sender: FDA-Public Use
  Company Number: JP-AMGEN-JPNSP2012045083

PATIENT
  Age: 43 Year
  Sex: Male
  Weight: 68 kg

DRUGS (13)
  1. GRAN [Suspect]
     Indication: NEUTROPENIA
     Route: 058
     Dates: start: 20120430, end: 20120505
  2. VANCOMYCIN [Concomitant]
     Indication: PNEUMONIA
     Route: 041
     Dates: start: 20120331, end: 20120418
  3. DORIPENEM MONOHYDRATE [Concomitant]
     Indication: PNEUMONIA
     Route: 041
     Dates: start: 20120419, end: 20120508
  4. FLUCONAZOLE [Concomitant]
     Indication: PROPHYLAXIS
     Route: 048
     Dates: start: 20120402
  5. PAZUCROSS [Concomitant]
     Indication: PNEUMONIA
     Route: 041
     Dates: start: 20120331, end: 20120414
  6. MEROPENEM [Concomitant]
     Indication: PNEUMONIA
     Route: 041
     Dates: start: 20120329, end: 20120418
  7. VANCOMYCIN [Concomitant]
     Route: 041
     Dates: start: 20120419, end: 20120508
  8. FIRSTCIN [Concomitant]
     Indication: PNEUMONIA
     Route: 041
     Dates: start: 20120328, end: 20120329
  9. FUNGUARD [Concomitant]
     Indication: PNEUMONIA
     Route: 041
     Dates: start: 20120405, end: 20120413
  10. LANSOPRAZOLE [Concomitant]
     Indication: GASTRITIS
     Route: 048
     Dates: start: 20120402
  11. LEVOFLOXACIN [Concomitant]
     Indication: PNEUMONIA
     Route: 041
     Dates: start: 20120430, end: 20120507
  12. FUNGUARD [Concomitant]
     Route: 041
     Dates: start: 20120430, end: 20120507
  13. SULFAMETHOXAZOLE AND TRIMETHOPRIM [Concomitant]
     Indication: ANTIFUNGAL PROPHYLAXIS
     Route: 048
     Dates: start: 20120402

REACTIONS (1)
  - ACUTE RESPIRATORY DISTRESS SYNDROME [None]
